FAERS Safety Report 15265629 (Version 1)
Quarter: 2018Q3

REPORT INFORMATION
  Report Type: Report from Study
  Country: US (occurrence: US)
  Receive Date: 20180810
  Receipt Date: 20180810
  Transmission Date: 20181010
  Serious: No
  Sender: FDA-Public Use
  Company Number: PHEH2018US032941

PATIENT
  Sex: Male

DRUGS (1)
  1. ENTRESTO [Suspect]
     Active Substance: SACUBITRIL\VALSARTAN
     Indication: PRODUCT USED FOR UNKNOWN INDICATION
     Route: 065

REACTIONS (9)
  - Dizziness [Unknown]
  - Back pain [Unknown]
  - Musculoskeletal discomfort [Unknown]
  - Headache [Unknown]
  - Fatigue [Unknown]
  - Muscle spasms [Unknown]
  - Constipation [Unknown]
  - Cough [Unknown]
  - Hypotension [Unknown]
